FAERS Safety Report 18701104 (Version 1)
Quarter: 2021Q1

REPORT INFORMATION
  Report Type: Spontaneous
  Country: US (occurrence: US)
  Receive Date: 20210105
  Receipt Date: 20210105
  Transmission Date: 20210419
  Serious: Yes (Death, Hospitalization)
  Sender: FDA-Public Use
  Company Number: US-BAYER-2020-287317

PATIENT
  Age: 49 Year
  Sex: Male

DRUGS (5)
  1. ALCOHOL. [Suspect]
     Active Substance: ALCOHOL
  2. ACETYLSALICYLIC ACID [Suspect]
     Active Substance: ASPIRIN
     Route: 048
  3. WARFARIN [Suspect]
     Active Substance: WARFARIN
  4. ISOPROPANOL [Suspect]
     Active Substance: ISOPROPANOLAMINE
  5. PERMETHRIN. [Suspect]
     Active Substance: PERMETHRIN

REACTIONS (2)
  - Product use issue [Fatal]
  - Toxicity to various agents [Fatal]
